FAERS Safety Report 6889880-8 (Version None)
Quarter: 2010Q3

REPORT INFORMATION
  Report Type: 
  Country: None (occurrence: None)
  Receive Date: 20100730
  Receipt Date: 20080519
  Transmission Date: 20110219
  Serious: No
  Sender: FDA-Public Use
  Company Number: US-PFIZER INC-2008043437

PATIENT
  Sex: Male
  Weight: 133.36 kg

DRUGS (3)
  1. LIPITOR [Suspect]
     Indication: BLOOD TRIGLYCERIDES INCREASED
     Route: 048
     Dates: start: 20020101
  2. ZETIA [Suspect]
     Indication: BLOOD CHOLESTEROL INCREASED
  3. VERAPAMIL [Concomitant]
     Route: 048

REACTIONS (3)
  - ARTHRALGIA [None]
  - HIGH DENSITY LIPOPROTEIN DECREASED [None]
  - LOW DENSITY LIPOPROTEIN DECREASED [None]
